FAERS Safety Report 9649697 (Version 1)
Quarter: 2013Q4

REPORT INFORMATION
  Report Type: Spontaneous
  Country: US (occurrence: US)
  Receive Date: 20131028
  Receipt Date: 20131028
  Transmission Date: 20140711
  Serious: Yes (Death, Other)
  Sender: FDA-Public Use
  Company Number: PHHY2013US118022

PATIENT
  Age: 43 Year
  Sex: Male

DRUGS (1)
  1. DONEPEZIL [Suspect]
     Indication: DEMENTIA
     Dosage: 10 MG/DAY

REACTIONS (8)
  - Death [Fatal]
  - Delirium [Recovered/Resolved]
  - Confusional state [Recovered/Resolved]
  - Disturbance in attention [Recovered/Resolved]
  - Apathy [Unknown]
  - Executive dysfunction [Unknown]
  - Affective disorder [Unknown]
  - Depressed level of consciousness [Unknown]
